FAERS Safety Report 12912388 (Version 2)
Quarter: 2016Q4

REPORT INFORMATION
  Report Type: Spontaneous
  Country: SE (occurrence: SE)
  Receive Date: 20161104
  Receipt Date: 20161110
  Transmission Date: 20170207
  Serious: Yes (Disabling)
  Sender: FDA-Public Use
  Company Number: SE-JNJFOC-20161102317

PATIENT
  Age: 40 Year
  Sex: Female

DRUGS (18)
  1. OLANZAPINE. [Suspect]
     Active Substance: OLANZAPINE
     Indication: PRODUCT USED FOR UNKNOWN INDICATION
     Route: 048
     Dates: start: 20151208, end: 20151211
  2. OLANZAPINE. [Suspect]
     Active Substance: OLANZAPINE
     Indication: PRODUCT USED FOR UNKNOWN INDICATION
     Dosage: 10 MG (1+2)
     Route: 048
     Dates: start: 20160109, end: 20160124
  3. OLANZAPINE. [Suspect]
     Active Substance: OLANZAPINE
     Indication: PRODUCT USED FOR UNKNOWN INDICATION
     Route: 048
     Dates: start: 20160101, end: 20160108
  4. CISORDINOL ACUTARD [Suspect]
     Active Substance: ZUCLOPENTHIXOL ACETATE
     Indication: PRODUCT USED FOR UNKNOWN INDICATION
     Route: 030
     Dates: start: 20160122, end: 20160122
  5. NITRAZEPAM [Concomitant]
     Active Substance: NITRAZEPAM
     Route: 065
  6. CISORDINOL ACUTARD [Suspect]
     Active Substance: ZUCLOPENTHIXOL ACETATE
     Indication: PRODUCT USED FOR UNKNOWN INDICATION
     Dosage: 50 MG/ML
     Route: 030
     Dates: start: 20151218, end: 20151218
  7. CISORDINOL ACUTARD [Suspect]
     Active Substance: ZUCLOPENTHIXOL ACETATE
     Indication: PRODUCT USED FOR UNKNOWN INDICATION
     Route: 030
     Dates: start: 20160118, end: 20160118
  8. ALIMEMAZINE [Concomitant]
     Active Substance: TRIMEPRAZINE
     Route: 065
  9. CLOMETHIAZOLE EDISILATE [Concomitant]
     Active Substance: CLOMETHIAZOLE EDISYLATE
     Route: 065
  10. PHENERGAN [Concomitant]
     Active Substance: PROMETHAZINE HYDROCHLORIDE
     Route: 065
  11. DIAZEPAM. [Concomitant]
     Active Substance: DIAZEPAM
     Route: 065
  12. LORAZEPAM. [Concomitant]
     Active Substance: LORAZEPAM
     Route: 065
  13. OLANZAPINE. [Suspect]
     Active Substance: OLANZAPINE
     Indication: PRODUCT USED FOR UNKNOWN INDICATION
     Route: 048
     Dates: start: 20151211, end: 20151215
  14. IMOVANE [Concomitant]
     Active Substance: ZOPICLONE
     Route: 065
  15. AKINETON [Concomitant]
     Active Substance: BIPERIDEN HYDROCHLORIDE
     Route: 065
  16. OXAZEPAM. [Concomitant]
     Active Substance: OXAZEPAM
     Route: 065
  17. RISPERDAL [Suspect]
     Active Substance: RISPERIDONE
     Indication: PRODUCT USED FOR UNKNOWN INDICATION
     Dosage: WITHDRAWN AFTER 16 DAYS
     Route: 048
     Dates: start: 20151215, end: 20151230
  18. CISORDINOL ACUTARD [Suspect]
     Active Substance: ZUCLOPENTHIXOL ACETATE
     Indication: PRODUCT USED FOR UNKNOWN INDICATION
     Route: 030
     Dates: start: 20160115, end: 20160115

REACTIONS (3)
  - Motor dysfunction [Recovered/Resolved with Sequelae]
  - Speech disorder [Recovered/Resolved with Sequelae]
  - Parkinsonism [Unknown]
